FAERS Safety Report 4591424-0 (Version None)
Quarter: 2005Q1

REPORT INFORMATION
  Report Type: 
  Country: None (occurrence: None)
  Receive Date: 20050222
  Receipt Date: 20050209
  Transmission Date: 20050727
  Serious: No
  Sender: FDA-Public Use
  Company Number: 2005UW02277

PATIENT
  Age: 51 Year
  Sex: Female
  Weight: 49.4421 kg

DRUGS (5)
  1. CRESTOR [Suspect]
     Indication: HYPERLIPIDAEMIA
     Dates: start: 20040716, end: 20040820
  2. WELLBUTRIN [Concomitant]
  3. AMBIEN [Concomitant]
  4. ALPRAZOLAM [Concomitant]
  5. LORAZEPAM [Concomitant]

REACTIONS (3)
  - ALANINE AMINOTRANSFERASE INCREASED [None]
  - ASPARTATE AMINOTRANSFERASE INCREASED [None]
  - RHABDOMYOLYSIS [None]
